FAERS Safety Report 6938168-5 (Version None)
Quarter: 2010Q3

REPORT INFORMATION
  Report Type: 
  Country: None (occurrence: None)
  Receive Date: 20100824
  Receipt Date: 20100810
  Transmission Date: 20110219
  Serious: Yes (Hospitalization)
  Sender: FDA-Public Use
  Company Number: DE-BAYER-201036428GPV

PATIENT
  Age: 69 Year
  Sex: Male
  Weight: 93 kg

DRUGS (8)
  1. FLUDARABINE [Suspect]
     Indication: CHRONIC LYMPHOCYTIC LEUKAEMIA
     Route: 042
     Dates: start: 20100309, end: 20100623
  2. RITUXIMAB [Suspect]
     Indication: CHRONIC LYMPHOCYTIC LEUKAEMIA
     Route: 042
     Dates: start: 20100308, end: 20100622
  3. CYCLOPHOSPHAMIDE [Suspect]
     Indication: CHRONIC LYMPHOCYTIC LEUKAEMIA
     Route: 042
     Dates: start: 20100309, end: 20100624
  4. PANTOPRAZOLE SODIUM [Concomitant]
     Dates: start: 20100730, end: 20100804
  5. ALLOPURINOL [Concomitant]
     Dates: start: 20100730, end: 20100804
  6. ACIC [Concomitant]
     Dates: start: 20100730, end: 20100805
  7. IBUPROFEN [Concomitant]
     Dates: start: 20100802, end: 20100805
  8. EMBOLEX [Concomitant]
     Route: 058
     Dates: start: 20100730, end: 20100805

REACTIONS (2)
  - ESCHERICHIA TEST POSITIVE [None]
  - UROSEPSIS [None]
